FAERS Safety Report 8295800-4 (Version None)
Quarter: 2012Q2

REPORT INFORMATION
  Report Type: 
  Country: None (occurrence: None)
  Receive Date: 20120416
  Receipt Date: 20120416
  Transmission Date: 20120825
  Serious: Yes (Hospitalization)
  Sender: FDA-Public Use
  Company Number: None

PATIENT
  Sex: Male
  Weight: 81 kg

DRUGS (3)
  1. ERBITUX [Suspect]
     Dosage: 500 MG
     Dates: end: 20120215
  2. FLUOROURACIL [Suspect]
     Dosage: 5600 MG
     Dates: end: 20120215
  3. IRINOTECAN HCL [Suspect]
     Dosage: 360 MG
     Dates: end: 20120215

REACTIONS (1)
  - PULMONARY EMBOLISM [None]
